FAERS Safety Report 4840457-5 (Version None)
Quarter: 2005Q4

REPORT INFORMATION
  Report Type: 
  Country: None (occurrence: None)
  Receive Date: 20051129
  Receipt Date: 20051129
  Transmission Date: 20060501
  Serious: Yes (Other)
  Sender: FDA-Public Use
  Company Number: None

PATIENT
  Sex: Male
  Weight: 32.659 kg

DRUGS (1)
  1. STRATTERA [Suspect]
     Indication: ATTENTION DEFICIT/HYPERACTIVITY DISORDER
     Dosage: 1 PO  QHS PO
     Route: 048
     Dates: start: 20051113, end: 20051126

REACTIONS (4)
  - FEAR [None]
  - NERVOUSNESS [None]
  - PARANOIA [None]
  - PERSECUTORY DELUSION [None]
